FAERS Safety Report 8829912 (Version 2)
Quarter: 2013Q1

REPORT INFORMATION
  Report Type: Spontaneous
  Country: US (occurrence: US)
  Receive Date: 20121008
  Receipt Date: 20130107
  Transmission Date: 20140127
  Serious: Yes (Other)
  Sender: FDA-Public Use
  Company Number: US-ASTRAZENECA-2012SE75263

PATIENT
  Age: 84 Year
  Sex: Female
  Weight: 58.2 kg

DRUGS (2)
  1. NEXIUM [Suspect]
     Route: 048
     Dates: start: 200906
  2. NEXIUM [Suspect]
     Route: 048
     Dates: start: 201005

REACTIONS (3)
  - Cerebrovascular accident [Unknown]
  - Fall [Unknown]
  - Subdural haematoma [Unknown]
